FAERS Safety Report 9729259 (Version 4)
Quarter: 2014Q1

REPORT INFORMATION
  Report Type: Spontaneous
  Country: AT (occurrence: AT)
  Receive Date: 20131204
  Receipt Date: 20140110
  Transmission Date: 20141002
  Serious: Yes (Life-Threatening, Hospitalization, Disabling)
  Sender: FDA-Public Use
  Company Number: AT-BRISTOL-MYERS SQUIBB COMPANY-19866847

PATIENT
  Age: 76 Year
  Sex: Male
  Weight: 70 kg

DRUGS (8)
  1. ERBITUX SOLN FOR INF 5MG/ML [Suspect]
     Indication: TONSIL CANCER
     Dosage: FIRST INFUSION, 5MG/20ML,400MG/M2?13NOV2013
     Route: 042
     Dates: start: 20131113, end: 20131113
  2. SEDACORON [Concomitant]
  3. SERETIDE [Concomitant]
  4. CARVEDILOL [Concomitant]
  5. MARCOUMAR [Concomitant]
  6. DIBONDRIN [Concomitant]
     Indication: PREMEDICATION
     Dates: start: 20131122, end: 20131222
  7. FAMOTIDINE [Concomitant]
     Indication: PREMEDICATION
     Dates: start: 20131122, end: 20131222
  8. URBASON [Concomitant]
     Indication: PREMEDICATION
     Dates: start: 20131122, end: 20131222

REACTIONS (4)
  - Acute pulmonary oedema [Unknown]
  - Anaphylactic reaction [Recovered/Resolved]
  - Dyspnoea [Recovered/Resolved]
  - Shock [Recovered/Resolved]
